FAERS Safety Report 23544246 (Version 1)
Quarter: 2024Q1

REPORT INFORMATION
  Report Type: Spontaneous
  Country: US (occurrence: US)
  Receive Date: 20240220
  Receipt Date: 20240220
  Transmission Date: 20240410
  Serious: Yes (Other)
  Sender: FDA-Public Use
  Company Number: US-SA-SAC20240219000752

PATIENT
  Age: 50 Year
  Sex: Female

DRUGS (1)
  1. DUPIXENT [Suspect]
     Active Substance: DUPILUMAB
     Indication: Neurodermatitis
     Dosage: 300 MG, QOW
     Route: 058

REACTIONS (12)
  - Delusion of parasitosis [Unknown]
  - Acne [Unknown]
  - Alopecia [Unknown]
  - Anxiety [Unknown]
  - Weight decreased [Unknown]
  - Dry eye [Unknown]
  - Neurodermatitis [Unknown]
  - Skin burning sensation [Unknown]
  - Erythema [Unknown]
  - Nodule [Unknown]
  - Swelling [Unknown]
  - Drug ineffective [Unknown]

NARRATIVE: CASE EVENT DATE: 20230509
